FAERS Safety Report 16789538 (Version 1)
Quarter: 2019Q3

REPORT INFORMATION
  Report Type: Spontaneous
  Country: US (occurrence: US)
  Receive Date: 20190718
  Receipt Date: 20190718
  Transmission Date: 20191005
  Serious: Yes (Hospitalization)
  Sender: FDA-Public Use
  Company Number: None

PATIENT
  Age: 28 Year
  Sex: Male
  Weight: 128.7 kg

DRUGS (2)
  1. RIBOCICLIB. [Suspect]
     Active Substance: RIBOCICLIB
     Indication: SARCOMA
     Dosage: ?          OTHER FREQUENCY:D8-D14;?
     Route: 048
     Dates: start: 20190307
  2. GEMCITABINE. [Suspect]
     Active Substance: GEMCITABINE
     Indication: SARCOMA
     Dosage: ?          OTHER FREQUENCY:D1 + D8;?
     Route: 042
     Dates: start: 20190221

REACTIONS (2)
  - Dyspnoea [None]
  - Presyncope [None]

NARRATIVE: CASE EVENT DATE: 20190713
